FAERS Safety Report 9778017 (Version 1)
Quarter: 2013Q4

REPORT INFORMATION
  Report Type: Spontaneous
  Country: CA (occurrence: CA)
  Receive Date: 20131223
  Receipt Date: 20131223
  Transmission Date: 20140711
  Serious: Yes (Life-Threatening, Hospitalization)
  Sender: FDA-Public Use
  Company Number: CA-BAYER-2013-153239

PATIENT
  Age: 37 Year
  Sex: Female
  Weight: 68.03 kg

DRUGS (1)
  1. YAZ [Suspect]
     Dosage: 1 DF, QD
     Route: 048

REACTIONS (6)
  - Pulmonary embolism [Recovering/Resolving]
  - Anxiety [Recovering/Resolving]
  - Chest discomfort [Recovering/Resolving]
  - Dyspnoea exertional [Recovering/Resolving]
  - Haemoptysis [Recovering/Resolving]
  - Tachycardia [None]
